FAERS Safety Report 22278737 (Version 1)
Quarter: 2023Q2

REPORT INFORMATION
  Report Type: Report from Study
  Country: US (occurrence: US)
  Receive Date: 20230503
  Receipt Date: 20230503
  Transmission Date: 20230722
  Serious: Yes (Death)
  Sender: FDA-Public Use
  Company Number: US-PFIZER INC-202300172004

PATIENT
  Age: 53 Year
  Sex: Male

DRUGS (5)
  1. LIDOCAINE HYDROCHLORIDE [Suspect]
     Active Substance: LIDOCAINE HYDROCHLORIDE
     Dosage: UNK
  2. METHAMPHETAMINE [Suspect]
     Active Substance: METHAMPHETAMINE
     Dosage: UNK
  3. COCAINE [Suspect]
     Active Substance: COCAINE
     Dosage: UNK
  4. CAFFEINE [Suspect]
     Active Substance: CAFFEINE
     Dosage: UNK
  5. ALCOHOL [Suspect]
     Active Substance: ALCOHOL

REACTIONS (3)
  - Toxicity to various agents [Fatal]
  - Arteriosclerosis [Fatal]
  - Overdose [Fatal]
